FAERS Safety Report 8052546-5 (Version None)
Quarter: 2012Q1

REPORT INFORMATION
  Report Type: 
  Country: None (occurrence: None)
  Receive Date: 20120112
  Receipt Date: 20120105
  Transmission Date: 20120608
  Serious: Yes (Other)
  Sender: FDA-Public Use
  Company Number: 1000026004

PATIENT
  Age: 57 Year
  Sex: Female

DRUGS (3)
  1. TOPICAL ECZEMA MEDICATION NOS (TOPICAL ECZEMA MEDICATION NOS) (TOPICAL [Concomitant]
  2. CELEXA [Suspect]
     Indication: DEPRESSION
     Dosage: 20 MG (20 MG, 1 IN 1 D), ORAL
     Route: 048
     Dates: start: 20100101, end: 20110401
  3. CELEXA [Suspect]
     Indication: DEPRESSION
     Dosage: 20 MG (20 MG, 1 IN 1 D), ORAL
     Route: 048
     Dates: start: 20110101, end: 20110901

REACTIONS (4)
  - HALLUCINATION [None]
  - RETINAL TEAR [None]
  - HEADACHE [None]
  - PHOTOPSIA [None]
